FAERS Safety Report 7324689-2 (Version None)
Quarter: 2011Q1

REPORT INFORMATION
  Report Type: 
  Country: None (occurrence: None)
  Receive Date: 20110301
  Receipt Date: 20110221
  Transmission Date: 20110831
  Serious: Yes (Other)
  Sender: FDA-Public Use
  Company Number: DE-TEVA-268442GER

PATIENT
  Age: 8 Year
  Sex: Male

DRUGS (8)
  1. INDOMETACIN [Suspect]
     Indication: JUVENILE ARTHRITIS
  2. PULSED IV METHYLPREDNISOLONE [Suspect]
     Indication: JUVENILE ARTHRITIS
  3. PREDNISOLONE [Suspect]
  4. PREDNISOLONE [Suspect]
     Indication: JUVENILE ARTHRITIS
  5. PREDNISOLONE [Suspect]
  6. PULSED IV METHYLPREDNISOLONE [Suspect]
  7. PREDNISOLONE [Suspect]
  8. PREDNISOLONE [Suspect]

REACTIONS (5)
  - INCREASED APPETITE [None]
  - HEPATOMEGALY [None]
  - LABORATORY TEST ABNORMAL [None]
  - WEIGHT INCREASED [None]
  - HISTIOCYTOSIS HAEMATOPHAGIC [None]
